FAERS Safety Report 7411456-4 (Version None)
Quarter: 2011Q2

REPORT INFORMATION
  Report Type: 
  Country: None (occurrence: None)
  Receive Date: 20110413
  Receipt Date: 20110401
  Transmission Date: 20111010
  Serious: Yes (Other)
  Sender: FDA-Public Use
  Company Number: PHHY2010DE64739

PATIENT
  Sex: Female

DRUGS (6)
  1. MYFORTIC [Suspect]
     Indication: GLOMERULONEPHRITIS ACUTE
  2. MYFORTIC [Suspect]
     Indication: IMMUNOSUPPRESSANT DRUG THERAPY
     Dosage: 360 MG, BID
     Route: 048
     Dates: start: 20080825, end: 20100730
  3. RASILEZ [Suspect]
     Indication: PROTEINURIA
     Dosage: 150 MG, QD
     Route: 048
     Dates: start: 20080101, end: 20100901
  4. RASILEZ [Suspect]
     Indication: HYPERTENSION
  5. LEVOTHYROXINE SODIUM [Concomitant]
     Indication: HYPOTHYROIDISM
     Dosage: 100 UG
     Route: 048
     Dates: start: 20040101
  6. CONTRACEPTIVES NOS [Concomitant]

REACTIONS (2)
  - ALVEOLITIS ALLERGIC [None]
  - COUGH [None]
